FAERS Safety Report 19812665 (Version 1)
Quarter: 2021Q3

REPORT INFORMATION
  Report Type: Other
  Country: US (occurrence: US)
  Receive Date: 20210910
  Receipt Date: 20210910
  Transmission Date: 20211014
  Serious: Yes (Other)
  Sender: FDA-Public Use
  Company Number: US-ROCHE-2907093

PATIENT
  Sex: Female

DRUGS (2)
  1. AVASTIN [Suspect]
     Active Substance: BEVACIZUMAB
     Indication: CARCINOID TUMOUR OF THE SMALL BOWEL
     Dosage: INFUSE 402.8MG INTRAVENOUSLY EVERY 3 WEEK(S)
     Route: 042
  2. AVASTIN [Suspect]
     Active Substance: BEVACIZUMAB
     Dosage: INFUSE 402.8MG INTRAVENOUSLY EVERY 3 WEEK(S)
     Route: 042

REACTIONS (2)
  - Ill-defined disorder [Unknown]
  - Off label use [Unknown]
